FAERS Safety Report 25318785 (Version 1)
Quarter: 2025Q2

REPORT INFORMATION
  Report Type: Spontaneous
  Country: US (occurrence: None)
  Receive Date: 20250514
  Receipt Date: 20250514
  Transmission Date: 20250717
  Serious: Yes (Other)
  Sender: FDA-CTU
  Company Number: None

PATIENT
  Age: 48 Year
  Sex: Female
  Weight: 76.7 kg

DRUGS (14)
  1. INFED [Suspect]
     Active Substance: IRON DEXTRAN
     Indication: Iron deficiency
     Route: 042
     Dates: start: 20250409, end: 20250409
  2. Azelastine 137 mcg nasal spray -1 spray in each nostril QD [Concomitant]
  3. Celecoxib 100 mg PO BID [Concomitant]
  4. Chlorthalidone 12.5 mg PO daily [Concomitant]
  5. Vitamin D3 125 mcg PO daily [Concomitant]
  6. Duloxetine 60 mg PO daily [Concomitant]
  7. Eliquis 2.5 mg PO BID [Concomitant]
  8. Famotidine 20 mg PO BID [Concomitant]
  9. Methadone 20 mg PO AM and 15 mg PO PM [Concomitant]
  10. Montelukast 10 mg PO daily [Concomitant]
  11. Mounjaro 10 mg SQ weekly [Concomitant]
  12. Potassium Chloride 20 mEq PO daily [Concomitant]
  13. Pravastatin 20 mg PO daily [Concomitant]
  14. Progesterone 200 mg PO daily [Concomitant]

REACTIONS (4)
  - Infusion related reaction [None]
  - Chest discomfort [None]
  - Flushing [None]
  - Pruritus [None]

NARRATIVE: CASE EVENT DATE: 20250409
